FAERS Safety Report 12706151 (Version 2)
Quarter: 2016Q3

REPORT INFORMATION
  Report Type: Spontaneous
  Country: US (occurrence: US)
  Receive Date: 20160901
  Receipt Date: 20160901
  Transmission Date: 20161109
  Serious: No
  Sender: FDA-Public Use
  Company Number: US-JAZZ-2016-US-008160

PATIENT
  Sex: Female

DRUGS (16)
  1. XYREM [Suspect]
     Active Substance: SODIUM OXYBATE
     Indication: NARCOLEPSY
     Dosage: 2.25 G, BID
     Route: 048
     Dates: start: 201403, end: 201403
  2. XYREM [Suspect]
     Active Substance: SODIUM OXYBATE
     Indication: CATAPLEXY
     Dosage: DOSE ADJUSTMENTS
     Route: 048
  3. BOTOX [Concomitant]
     Active Substance: ONABOTULINUMTOXINA
  4. RITALIN [Concomitant]
     Active Substance: METHYLPHENIDATE HYDROCHLORIDE
  5. ZELNORM [Concomitant]
     Active Substance: TEGASEROD MALEATE
  6. FLOVENT HFA [Concomitant]
     Active Substance: FLUTICASONE PROPIONATE
  7. MECLIZINE [Concomitant]
     Active Substance: MECLIZINE HYDROCHLORIDE
  8. NEURONTIN [Concomitant]
     Active Substance: GABAPENTIN
  9. SPIRONOLACTONE. [Concomitant]
     Active Substance: SPIRONOLACTONE
  10. TRIAMCINOLONE [Concomitant]
     Active Substance: TRIAMCINOLONE
  11. XYREM [Suspect]
     Active Substance: SODIUM OXYBATE
     Dosage: 3.75 G, BID
     Route: 048
     Dates: start: 201602
  12. ZOFRAN [Concomitant]
     Active Substance: ONDANSETRON HYDROCHLORIDE
  13. RESTASIS [Concomitant]
     Active Substance: CYCLOSPORINE
  14. INDERAL [Concomitant]
     Active Substance: PROPRANOLOL HYDROCHLORIDE
  15. XYREM [Suspect]
     Active Substance: SODIUM OXYBATE
     Dosage: 3.5-3.75 G SECOND DOSE
     Route: 048
     Dates: start: 201602
  16. SYNTHROID [Concomitant]
     Active Substance: LEVOTHYROXINE SODIUM

REACTIONS (2)
  - Visual impairment [Unknown]
  - Vitamin D deficiency [Unknown]
